FAERS Safety Report 8035922-6 (Version None)
Quarter: 2012Q1

REPORT INFORMATION
  Report Type: 
  Country: None (occurrence: None)
  Receive Date: 20120105
  Receipt Date: 20111226
  Transmission Date: 20120608
  Serious: Yes (Hospitalization, Other)
  Sender: FDA-Public Use
  Company Number: 2011SP051182

PATIENT
  Age: 64 Year
  Sex: Male
  Weight: 76 kg

DRUGS (6)
  1. GASMOTIN [Concomitant]
  2. RABEPRAZOLE SODIUM [Concomitant]
  3. PEG-INTRON [Suspect]
     Indication: HEPATITIS C
     Dosage: 60 MCG;QW;SC
     Route: 058
     Dates: start: 20110608, end: 20111012
  4. MOTILIUM [Concomitant]
  5. SELBEX [Concomitant]
  6. REBETOL [Suspect]
     Indication: HEPATITIS C
     Dosage: ;PO
     Route: 048
     Dates: start: 20110608, end: 20111026

REACTIONS (2)
  - ACUTE LEUKAEMIA [None]
  - PLATELET COUNT DECREASED [None]
